FAERS Safety Report 18223004 (Version 1)
Quarter: 2020Q3

REPORT INFORMATION
  Report Type: Spontaneous
  Country: US (occurrence: US)
  Receive Date: 20200902
  Receipt Date: 20200902
  Transmission Date: 20201103
  Serious: Yes (Other)
  Sender: FDA-Public Use
  Company Number: US-PFIZER INC-2019365572

PATIENT
  Age: 67 Year

DRUGS (1)
  1. PREMARIN [Suspect]
     Active Substance: ESTROGENS, CONJUGATED
     Indication: PAIN
     Dosage: UNK, WEEKLY (USE 2?3 TIMES WEEKLY)
     Route: 067

REACTIONS (3)
  - Prolapse [Unknown]
  - Off label use [Unknown]
  - Product use in unapproved indication [Unknown]
